FAERS Safety Report 6969871-9 (Version None)
Quarter: 2010Q3

REPORT INFORMATION
  Report Type: 
  Country: None (occurrence: None)
  Receive Date: 20100908
  Receipt Date: 20100827
  Transmission Date: 20110219
  Serious: Yes (Hospitalization)
  Sender: FDA-Public Use
  Company Number: CH-CEPHALON-2010004741

PATIENT
  Sex: Male

DRUGS (2)
  1. TREANDA [Suspect]
     Indication: NODAL MARGINAL ZONE B-CELL LYMPHOMA
     Route: 042
     Dates: start: 20100101
  2. MABTHERA [Concomitant]

REACTIONS (1)
  - ANAEMIA HAEMOLYTIC AUTOIMMUNE [None]
